FAERS Safety Report 13395244 (Version 1)
Quarter: 2017Q1

REPORT INFORMATION
  Report Type: Spontaneous
  Country: US (occurrence: US)
  Receive Date: 20170331
  Receipt Date: 20170331
  Transmission Date: 20170429
  Serious: Yes (Life-Threatening)
  Sender: FDA-Public Use
  Company Number: None

PATIENT
  Age: 6 Year
  Sex: Male
  Weight: 22.5 kg

DRUGS (3)
  1. PREDNISOLONE. [Concomitant]
     Active Substance: PREDNISOLONE
  2. LORATIDINE [Concomitant]
     Active Substance: LORATADINE
  3. ZITHROMAX [Suspect]
     Active Substance: AZITHROMYCIN DIHYDRATE
     Indication: OTITIS MEDIA
     Dates: start: 20170327, end: 20170328

REACTIONS (5)
  - Nasal congestion [None]
  - Drug hypersensitivity [None]
  - Pruritus [None]
  - Lip swelling [None]
  - Rash maculo-papular [None]

NARRATIVE: CASE EVENT DATE: 20170327
